FAERS Safety Report 8192695 (Version 6)
Quarter: 2014Q1

REPORT INFORMATION
  Report Type: Spontaneous
  Country: US (occurrence: US)
  Receive Date: 20111021
  Receipt Date: 20140106
  Transmission Date: 20141002
  Serious: Yes (Other)
  Sender: FDA-Public Use
  Company Number: US-JNJFOC-20111007193

PATIENT
  Age: 59 Year
  Sex: Male
  Weight: 78.02 kg

DRUGS (2)
  1. DURAGESIC [Suspect]
     Indication: BURNING SENSATION
     Dosage: (NDC#5045809405)
     Route: 062
     Dates: start: 2006, end: 2007
  2. DURAGESIC [Suspect]
     Indication: BURNING SENSATION
     Route: 062
     Dates: start: 201108

REACTIONS (6)
  - Dyspnoea [Recovered/Resolved]
  - Feeling abnormal [Not Recovered/Not Resolved]
  - Pain in extremity [Not Recovered/Not Resolved]
  - Drug ineffective [Not Recovered/Not Resolved]
  - Product adhesion issue [Recovered/Resolved]
  - Wrong technique in drug usage process [Unknown]
